FAERS Safety Report 19259965 (Version 4)
Quarter: 2021Q2

REPORT INFORMATION
  Report Type: Report from Study
  Country: HK (occurrence: HK)
  Receive Date: 20210514
  Receipt Date: 20210610
  Transmission Date: 20210717
  Serious: Yes (Life-Threatening, Hospitalization, Other)
  Sender: FDA-Public Use
  Company Number: HK-PFIZER INC-2021532179

PATIENT
  Age: 50 Year
  Sex: Male
  Weight: 80 kg

DRUGS (6)
  1. CARBOPLATIN. [Concomitant]
     Active Substance: CARBOPLATIN
     Indication: GLIOMA
     Dosage: 200 MG, WEEKLY
     Route: 042
     Dates: start: 20210324
  2. CARBOPLATIN. [Concomitant]
     Active Substance: CARBOPLATIN
     Dosage: 140 MG, WEEKLY
     Route: 042
     Dates: start: 20210507, end: 20210507
  3. COTRIMOXAZOLE [Concomitant]
     Active Substance: SULFAMETHOXAZOLE\TRIMETHOPRIM
     Indication: ANTIFUNGAL PROPHYLAXIS
     Dosage: UNK
     Route: 048
     Dates: start: 20200114
  4. TALAZOPARIB. [Suspect]
     Active Substance: TALAZOPARIB
     Indication: GLIOMA
     Dosage: 0.75 MG, DAILY
     Route: 048
     Dates: start: 20210324
  5. TALAZOPARIB. [Suspect]
     Active Substance: TALAZOPARIB
     Dosage: 0.5 MG, DAILY
     Route: 048
     Dates: start: 20210507, end: 20210510
  6. DEXAMETHASONE. [Concomitant]
     Active Substance: DEXAMETHASONE
     Indication: BRAIN OEDEMA
     Dosage: UNK
     Route: 048
     Dates: start: 20200114

REACTIONS (1)
  - Pulmonary embolism [Recovered/Resolved]

NARRATIVE: CASE EVENT DATE: 20210510
